FAERS Safety Report 20430290 (Version 1)
Quarter: 2022Q1

REPORT INFORMATION
  Report Type: Report from Study
  Country: FR (occurrence: FR)
  Receive Date: 20220204
  Receipt Date: 20220204
  Transmission Date: 20220424
  Serious: Yes (Hospitalization)
  Sender: FDA-Public Use
  Company Number: FR-SERVIER-S20005729

PATIENT

DRUGS (5)
  1. ONCASPAR [Suspect]
     Active Substance: PEGASPARGASE
     Indication: Acute lymphocytic leukaemia
     Dosage: UNK
     Route: 042
  2. METHOTREXATE [Concomitant]
     Active Substance: METHOTREXATE
     Indication: Acute lymphocytic leukaemia
     Dosage: 2220 MG, D8, D22, D36, D50
     Route: 042
     Dates: start: 20190107
  3. METHOTREXATE [Concomitant]
     Active Substance: METHOTREXATE
     Dosage: 8 MG, D9, D23, D37, D51
     Route: 037
     Dates: start: 20190108
  4. MERCAPTOPURINE [Concomitant]
     Active Substance: MERCAPTOPURINE
     Indication: Acute lymphocytic leukaemia
     Dosage: 11.75 MG, D1 TO D56
     Route: 048
     Dates: start: 20181231
  5. AMBISOME [Concomitant]
     Active Substance: AMPHOTERICIN B
     Indication: Antifungal prophylaxis
     Dosage: UNK
     Route: 048
     Dates: start: 20181015

REACTIONS (1)
  - Staphylococcal sepsis [Recovered/Resolved]

NARRATIVE: CASE EVENT DATE: 20190213
